FAERS Safety Report 11544576 (Version 1)
Quarter: 2015Q3

REPORT INFORMATION
  Report Type: Spontaneous
  Country: IT (occurrence: IT)
  Receive Date: 20150924
  Receipt Date: 20150924
  Transmission Date: 20151125
  Serious: Yes (Hospitalization)
  Sender: FDA-Public Use
  Company Number: IT-ASTRAZENECA-2015SE91463

PATIENT
  Age: 28725 Day
  Sex: Female
  Weight: 53 kg

DRUGS (5)
  1. EUTIROX [Concomitant]
     Active Substance: LEVOTHYROXINE SODIUM
  2. BRILIQUE [Suspect]
     Active Substance: TICAGRELOR
     Indication: CORONARY ANGIOPLASTY
     Route: 048
     Dates: start: 20141201, end: 20150903
  3. CARVEDILOL. [Concomitant]
     Active Substance: CARVEDILOL
  4. LASIX [Interacting]
     Active Substance: FUROSEMIDE
     Route: 048
     Dates: start: 20141201
  5. SPIROLANG [Interacting]
     Active Substance: SPIRONOLACTONE
     Route: 048
     Dates: start: 20141201, end: 20150903

REACTIONS (2)
  - Hyperuricaemia [Recovering/Resolving]
  - Drug interaction [Unknown]

NARRATIVE: CASE EVENT DATE: 20150901
